FAERS Safety Report 16852051 (Version 1)
Quarter: 2019Q3

REPORT INFORMATION
  Report Type: Spontaneous
  Country: US (occurrence: US)
  Receive Date: 20190925
  Receipt Date: 20190925
  Transmission Date: 20191005
  Serious: No
  Sender: FDA-Public Use
  Company Number: US-ASTRAZENECA-2019SF23327

PATIENT
  Age: 24314 Day
  Sex: Male
  Weight: 77.1 kg

DRUGS (1)
  1. BYDUREON BCISE [Suspect]
     Active Substance: EXENATIDE
     Indication: BLOOD GLUCOSE DECREASED
     Route: 058
     Dates: start: 20190625

REACTIONS (3)
  - Injection site nodule [Recovering/Resolving]
  - Injection site bruising [Recovering/Resolving]
  - Wrong technique in device usage process [Unknown]

NARRATIVE: CASE EVENT DATE: 20190625
